FAERS Safety Report 7059905-8 (Version None)
Quarter: 2010Q4

REPORT INFORMATION
  Report Type: 
  Country: None (occurrence: None)
  Receive Date: 20101025
  Receipt Date: 20101021
  Transmission Date: 20110411
  Serious: Yes (Death)
  Sender: FDA-Public Use
  Company Number: PHHY2010US71176

PATIENT
  Sex: Male

DRUGS (1)
  1. MYFORTIC [Suspect]
     Indication: TRANSPLANT
     Dosage: 180 MG, BID
     Route: 048
     Dates: start: 20091224, end: 20100724

REACTIONS (1)
  - COMPLICATIONS OF TRANSPLANT SURGERY [None]
